FAERS Safety Report 9779066 (Version 1)
Quarter: 2013Q4

REPORT INFORMATION
  Report Type: Spontaneous
  Country: US (occurrence: US)
  Receive Date: 20131223
  Receipt Date: 20131223
  Transmission Date: 20140711
  Serious: No
  Sender: FDA-Public Use
  Company Number: US-PFIZER INC-2013366540

PATIENT
  Age: 60 Year
  Sex: Female
  Weight: 55.33 kg

DRUGS (3)
  1. XANAX [Suspect]
     Indication: ANXIETY
     Dosage: 1 MG, 3X/DAY
  2. PRISTIQ [Suspect]
     Indication: DEPRESSION
     Dosage: 50 MG, UNK
     Dates: start: 2013
  3. LAMICTAL [Suspect]
     Indication: MOOD SWINGS
     Dosage: 200 MG, DAILY

REACTIONS (1)
  - Drug ineffective [Unknown]
